FAERS Safety Report 26136037 (Version 1)
Quarter: 2025Q4

REPORT INFORMATION
  Report Type: Spontaneous
  Country: US (occurrence: None)
  Receive Date: 20251209
  Receipt Date: 20251209
  Transmission Date: 20260117
  Serious: No
  Sender: FDA-CTU
  Company Number: None

PATIENT
  Age: 53 Year
  Sex: Male
  Weight: 90 kg

DRUGS (1)
  1. ZEMAIRA [Suspect]
     Active Substance: .ALPHA.1-PROTEINASE INHIBITOR HUMAN
     Dates: start: 20250508, end: 20250508

REACTIONS (3)
  - Drug delivery system removal [None]
  - Wrong technique in product usage process [None]
  - Wrong technique in product usage process [None]

NARRATIVE: CASE EVENT DATE: 20250508
